FAERS Safety Report 6924475-9 (Version None)
Quarter: 2010Q3

REPORT INFORMATION
  Report Type: 
  Country: None (occurrence: None)
  Receive Date: 20100811
  Receipt Date: 20100805
  Transmission Date: 20110219
  Serious: Yes (Disabling)
  Sender: FDA-Public Use
  Company Number: OSCN-NO-1003L-0082

PATIENT
  Age: 59 Year
  Sex: Female

DRUGS (12)
  1. MAGNEVIST [Suspect]
     Indication: ACOUSTIC NEUROMA
     Dosage: 20 ML, SINGLE DOSE, I.V.
     Route: 042
     Dates: start: 20090930, end: 20090930
  2. PRECIPITATED CALCIUM CARBONATE [Concomitant]
  3. LOSARTAN POTASSIUM (NU-LOTAN) [Concomitant]
  4. ACETYLSALICYLIC ACID (BAYASPIRIN) [Concomitant]
  5. FAMOTIDINE (GASTER D) [Concomitant]
  6. CARBOCISTEINE (MUCODYNE) [Concomitant]
  7. DIAZEPAM (CERCINE) [Concomitant]
  8. CARVEDILOL (ARTIST) [Concomitant]
  9. ALFACALCIDOL (ALFAROL) [Concomitant]
  10. ADENOSINE TRIPHOSPHATE, DISODIUM SALT (ADETPHOS) [Concomitant]
  11. CYANOCOBOLAMIN (METHYCOBAL) [Concomitant]
  12. WAFARIN (WAFARIN) [Concomitant]

REACTIONS (8)
  - EOSINOPHILIC FASCIITIS [None]
  - HAEMODIALYSIS [None]
  - JOINT CONTRACTURE [None]
  - NEPHROGENIC SYSTEMIC FIBROSIS [None]
  - PAIN [None]
  - PULMONARY FIBROSIS [None]
  - SCLERODERMA [None]
  - SYSTEMIC SCLEROSIS [None]
